FAERS Safety Report 5680445-2 (Version None)
Quarter: 2008Q1

REPORT INFORMATION
  Report Type: 
  Country: None (occurrence: None)
  Receive Date: 20080326
  Receipt Date: 20080320
  Transmission Date: 20080703
  Serious: Yes (Other)
  Sender: FDA-Public Use
  Company Number: A0716692A

PATIENT
  Age: 45 Year
  Sex: Female

DRUGS (2)
  1. WELLBUTRIN SR [Suspect]
     Indication: DEPRESSION
     Dosage: 100MG PER DAY
     Route: 048
     Dates: start: 20080114
  2. LEXAPRO [Concomitant]

REACTIONS (6)
  - ANAPHYLACTIC SHOCK [None]
  - CHEST PAIN [None]
  - PAIN [None]
  - PHARYNGOLARYNGEAL PAIN [None]
  - SWELLING [None]
  - URTICARIA [None]
